FAERS Safety Report 4763770-9 (Version None)
Quarter: 2005Q3

REPORT INFORMATION
  Report Type: 
  Country: None (occurrence: None)
  Receive Date: 20050908
  Receipt Date: 20050901
  Transmission Date: 20060218
  Serious: Yes (Other)
  Sender: FDA-Public Use
  Company Number: PHEH2005US09769

PATIENT
  Age: 83 Year
  Sex: Male

DRUGS (1)
  1. ZOMETA [Suspect]
     Indication: MULTIPLE MYELOMA
     Dosage: 4 MG EVERY 4 WEEKS
     Dates: start: 20020606, end: 20050802

REACTIONS (2)
  - ASEPTIC NECROSIS BONE [None]
  - TOOTH EXTRACTION [None]
